FAERS Safety Report 9012114 (Version 1)
Quarter: 2012Q4

REPORT INFORMATION
  Report Type: Spontaneous
  Country: US (occurrence: None)
  Receive Date: 20121227
  Receipt Date: 20121227
  Transmission Date: 20130627
  Serious: Yes (Death)
  Sender: FDA-Public Use
  Company Number: E2B_00000522

PATIENT
  Age: 2 Month
  Sex: Male
  Weight: 7 kg

DRUGS (6)
  1. CEFDINIR [Suspect]
     Indication: UPPER RESPIRATORY TRACT INFECTION
     Route: 048
     Dates: start: 201105
  2. CEFDINIR [Suspect]
     Indication: OTITIS MEDIA
     Route: 048
     Dates: start: 201105
  3. CEFDINIR [Suspect]
     Indication: UPPER RESPIRATORY TRACT INFECTION
     Route: 048
     Dates: start: 20110711, end: 20110714
  4. CEFDINIR [Suspect]
     Indication: OTITIS MEDIA
     Route: 048
     Dates: start: 20110711, end: 20110714
  5. RANITIDINE (ZANTAC) [Concomitant]
  6. CEFTRIAXONE (ROCEPHIN) [Concomitant]

REACTIONS (6)
  - Underdose [None]
  - Decreased appetite [None]
  - Vomiting [None]
  - Weight decreased [None]
  - Drug ineffective [None]
  - Circulatory collapse [None]
